FAERS Safety Report 9063495 (Version 1)
Quarter: 2013Q1

REPORT INFORMATION
  Report Type: Report from Study
  Country: US (occurrence: US)
  Receive Date: 20130131
  Receipt Date: 20130131
  Transmission Date: 20140127
  Serious: No
  Sender: FDA-Public Use
  Company Number: US-ABBOTT-12P-163-1000255-00

PATIENT
  Age: 56 None
  Sex: Male

DRUGS (7)
  1. HUMIRA [Suspect]
     Indication: PSORIATIC ARTHROPATHY
     Route: 058
     Dates: start: 201209
  2. ALLOPURINOL [Concomitant]
     Dosage: 300 MG DAILY
     Dates: end: 20121018
  3. METOPROLOL [Concomitant]
     Indication: CARDIOVASCULAR EVENT PROPHYLAXIS
  4. LISINOPRIL [Concomitant]
     Indication: CARDIOVASCULAR EVENT PROPHYLAXIS
  5. VITAMIN D [Concomitant]
     Indication: PRODUCT USED FOR UNKNOWN INDICATION
  6. VITAMIN E [Concomitant]
     Indication: PRODUCT USED FOR UNKNOWN INDICATION
  7. FISH OIL [Concomitant]
     Indication: PRODUCT USED FOR UNKNOWN INDICATION

REACTIONS (6)
  - Nasal congestion [Unknown]
  - Rash [Unknown]
  - Upper respiratory tract irritation [Not Recovered/Not Resolved]
  - Rash [Not Recovered/Not Resolved]
  - Skin exfoliation [Not Recovered/Not Resolved]
  - Hypersensitivity [Unknown]
